FAERS Safety Report 10082816 (Version 1)
Quarter: 2014Q2

REPORT INFORMATION
  Report Type: Report from Study
  Country: US (occurrence: US)
  Receive Date: 20140416
  Receipt Date: 20140416
  Transmission Date: 20141212
  Serious: Yes (Other)
  Sender: FDA-Public Use
  Company Number: US-ABBVIE-14P-163-1223741-00

PATIENT
  Sex: Female
  Weight: 68.55 kg

DRUGS (1)
  1. LUPRON DEPOT [Suspect]
     Indication: UTERINE LEIOMYOMA
     Dates: start: 20140108

REACTIONS (5)
  - Abdominal mass [Unknown]
  - Menorrhagia [Unknown]
  - Hot flush [Unknown]
  - Weight decreased [Unknown]
  - Memory impairment [Unknown]
